FAERS Safety Report 6138497-1 (Version None)
Quarter: 2009Q1

REPORT INFORMATION
  Report Type: 
  Country: None (occurrence: None)
  Receive Date: 20090331
  Receipt Date: 20090320
  Transmission Date: 20090719
  Serious: Yes (Hospitalization)
  Sender: FDA-Public Use
  Company Number: US-MERCK-0604USA02029

PATIENT
  Age: 72 Year
  Sex: Female
  Weight: 61 kg

DRUGS (9)
  1. FOSAMAX [Suspect]
     Indication: OSTEITIS DEFORMANS
     Route: 048
     Dates: end: 20010222
  2. FOSAMAX [Suspect]
     Route: 048
  3. FOSAMAX [Suspect]
     Route: 048
     Dates: end: 20020614
  4. FOSAMAX [Suspect]
     Route: 048
     Dates: start: 20020614
  5. FOSAMAX [Suspect]
     Route: 048
     Dates: end: 20031021
  6. FOSAMAX [Suspect]
     Route: 048
     Dates: start: 20031021
  7. FOSAMAX [Suspect]
     Route: 048
     Dates: end: 20060207
  8. FOSAMAX [Suspect]
     Route: 048
     Dates: start: 19960101
  9. FOSAMAX [Suspect]
     Route: 048
     Dates: start: 19990721

REACTIONS (45)
  - ANAEMIA [None]
  - ARTHRALGIA [None]
  - ASTHENIA [None]
  - BACK PAIN [None]
  - CARPAL TUNNEL SYNDROME [None]
  - CATARACT [None]
  - CELLULITIS [None]
  - CERVICAL CORD COMPRESSION [None]
  - CHOLELITHIASIS [None]
  - COLITIS [None]
  - COLON CANCER METASTATIC [None]
  - CONSTIPATION [None]
  - CONTUSION [None]
  - CORNEAL OEDEMA [None]
  - DEPRESSION [None]
  - DIARRHOEA [None]
  - DIZZINESS [None]
  - ERYTHEMA [None]
  - FACE INJURY [None]
  - FACIAL BONES FRACTURE [None]
  - FALL [None]
  - FLANK PAIN [None]
  - GAIT DISTURBANCE [None]
  - GASTRITIS [None]
  - HERPES ZOSTER [None]
  - IMPAIRED GASTRIC EMPTYING [None]
  - JOINT RANGE OF MOTION DECREASED [None]
  - KYPHOSIS [None]
  - LYMPHANGITIS [None]
  - MUSCLE SPASMS [None]
  - MUSCULOSKELETAL PAIN [None]
  - OEDEMA PERIPHERAL [None]
  - OSTEONECROSIS [None]
  - PEMPHIGUS [None]
  - POLLAKIURIA [None]
  - POLYP [None]
  - PRURITUS [None]
  - RASH [None]
  - ROAD TRAFFIC ACCIDENT [None]
  - SINUS DISORDER [None]
  - SPINAL COLUMN STENOSIS [None]
  - SPINAL DISORDER [None]
  - TENOSYNOVITIS STENOSANS [None]
  - URINARY TRACT INFECTION [None]
  - WEIGHT INCREASED [None]
